FAERS Safety Report 7525920-0 (Version None)
Quarter: 2011Q2

REPORT INFORMATION
  Report Type: 
  Country: None (occurrence: None)
  Receive Date: 20110606
  Receipt Date: 20110526
  Transmission Date: 20111010
  Serious: Yes (Hospitalization)
  Sender: FDA-Public Use
  Company Number: B0724081A

PATIENT
  Age: 12 Year
  Sex: Male
  Weight: 36 kg

DRUGS (14)
  1. ACETAMINOPHEN [Suspect]
     Dosage: 500MG FOUR TIMES PER DAY
     Route: 048
     Dates: start: 20110215, end: 20110220
  2. NIFEDIPINE [Suspect]
     Dosage: 5MG PER DAY
     Route: 042
     Dates: start: 20110218, end: 20110218
  3. NALBUPHINE [Suspect]
     Dosage: 3.5MG SIX TIMES PER DAY
     Route: 042
     Dates: start: 20110218, end: 20110218
  4. IBRUPROFEN [Suspect]
     Dosage: 400MG PER DAY
     Route: 048
     Dates: start: 20110215, end: 20110216
  5. MORPHINE [Suspect]
     Dosage: .5MG PER DAY
     Route: 042
     Dates: start: 20110218, end: 20110218
  6. VANCOMYCIN [Suspect]
     Dosage: 500MG FOUR TIMES PER DAY
     Route: 042
     Dates: start: 20110201, end: 20110217
  7. TEGRETOL [Suspect]
     Dosage: 200MG TWICE PER DAY
     Route: 048
  8. ZOFRAN [Suspect]
     Dosage: 3.5MG PER DAY
     Route: 042
     Dates: start: 20110218, end: 20110218
  9. MEROPENEM [Suspect]
     Dosage: 1.5G THREE TIMES PER DAY
     Route: 042
     Dates: start: 20110201, end: 20110311
  10. METRONIDAZOLE [Suspect]
     Dosage: 350MG THREE TIMES PER DAY
     Route: 042
     Dates: start: 20110217, end: 20110301
  11. TORADOL [Suspect]
     Route: 065
  12. URBANYL [Suspect]
     Dosage: 10MG TWICE PER DAY
     Route: 048
  13. DIPYRONE TAB [Suspect]
     Route: 065
  14. AMIKIN [Suspect]
     Dosage: 750MG PER DAY
     Route: 042
     Dates: start: 20110217, end: 20110309

REACTIONS (2)
  - NEUTROPENIA [None]
  - AGRANULOCYTOSIS [None]
